FAERS Safety Report 20495263 (Version 6)
Quarter: 2022Q2

REPORT INFORMATION
  Report Type: Report from Study
  Country: US (occurrence: None)
  Receive Date: 20220221
  Receipt Date: 20220505
  Transmission Date: 20220721
  Serious: Yes (Hospitalization, Other)
  Sender: FDA-Public Use
  Company Number: US-Merck Healthcare KGaA-9301204

PATIENT
  Age: 63 Year
  Sex: Female

DRUGS (2)
  1. REBIF [Suspect]
     Active Substance: INTERFERON BETA-1A
     Indication: Multiple sclerosis
     Route: 058
     Dates: start: 20110922
  2. REBIF [Suspect]
     Active Substance: INTERFERON BETA-1A
     Dosage: PREVIOUSLY: REBIF PREFILLED SYRINGE
     Route: 058

REACTIONS (9)
  - Fall [Recovering/Resolving]
  - Loss of consciousness [Unknown]
  - Upper limb fracture [Recovering/Resolving]
  - Rib fracture [Recovering/Resolving]
  - Skin laceration [Recovering/Resolving]
  - Contusion [Recovering/Resolving]
  - Muscular weakness [Unknown]
  - Fatigue [Unknown]
  - Product dose omission issue [Unknown]

NARRATIVE: CASE EVENT DATE: 20220101
